FAERS Safety Report 20772619 (Version 2)
Quarter: 2024Q4

REPORT INFORMATION
  Report Type: Spontaneous
  Country: US (occurrence: US)
  Receive Date: 20220502
  Receipt Date: 20241213
  Transmission Date: 20250115
  Serious: Yes (Death, Other)
  Sender: BRISTOL-MYERS SQUIBB COMPANY
  Company Number: US-BRISTOL-MYERS SQUIBB COMPANY-2022-027038

PATIENT
  Age: 99 Year
  Sex: Female

DRUGS (13)
  1. ELIQUIS [Suspect]
     Active Substance: APIXABAN
     Indication: Product used for unknown indication
     Dosage: DOSE : 2.5MG;     FREQ : TWICE PER DAY
     Route: 048
  2. FERROUS SULFATE [Concomitant]
     Active Substance: FERROUS SULFATE
  3. BUPROPION [Concomitant]
     Active Substance: BUPROPION
  4. MIRTAZAPINE [Concomitant]
     Active Substance: MIRTAZAPINE
  5. OMEPRAZOLE [Concomitant]
     Active Substance: OMEPRAZOLE
  6. TAMOXIFEN [Concomitant]
     Active Substance: TAMOXIFEN
  7. VITAMIN D3 [Concomitant]
     Active Substance: CHOLECALCIFEROL
  8. FOLIC ACID [Concomitant]
     Active Substance: FOLIC ACID
  9. FUROSEMIDE [Concomitant]
     Active Substance: FUROSEMIDE
  10. IRON [Concomitant]
     Active Substance: IRON
  11. LOSARTAN [Concomitant]
     Active Substance: LOSARTAN
  12. MELATONIN [Concomitant]
     Active Substance: MELATONIN
  13. METOPROLOL [Concomitant]
     Active Substance: METOPROLOL

REACTIONS (1)
  - Death [Fatal]
